FAERS Safety Report 9240727 (Version 1)
Quarter: 2013Q1

REPORT INFORMATION
  Report Type: Spontaneous
  Country: US (occurrence: None)
  Receive Date: 20121120
  Receipt Date: 20121120
  Transmission Date: 20140127
  Serious: No
  Sender: FDA-Public Use
  Company Number: 1000038909

PATIENT
  Age: 57 Year
  Sex: Male

DRUGS (5)
  1. VIIBRYD (VILAZODONE HYDROCHLORIDE) [Suspect]
     Indication: DEPRESSION
     Route: 048
     Dates: start: 20120914, end: 20120920
  2. LIPITOR (ATORVASTATIN CALCIUM) [Concomitant]
  3. VITAMINS (NOS) (VITAMINS NOS) [Concomitant]
  4. FISH OIL [Concomitant]
  5. LIBRAX (LIBRAX) [Concomitant]

REACTIONS (6)
  - Weight decreased [None]
  - Diarrhoea [None]
  - Nausea [None]
  - Insomnia [None]
  - Dizziness [None]
  - Headache [None]
